FAERS Safety Report 23190688 (Version 2)
Quarter: 2023Q4

REPORT INFORMATION
  Report Type: Spontaneous
  Country: US (occurrence: US)
  Receive Date: 20231116
  Receipt Date: 20231128
  Transmission Date: 20240109
  Serious: Yes (Hospitalization, Other)
  Sender: FDA-Public Use
  Company Number: US-Accord-389747

PATIENT
  Age: 69 Year
  Sex: Female

DRUGS (4)
  1. METHOTREXATE [Suspect]
     Active Substance: METHOTREXATE
     Indication: Pemphigoid
     Dosage: ONCE WEEKLY
  2. PREDNISONE [Concomitant]
     Active Substance: PREDNISONE
     Indication: Pemphigoid
     Dosage: CONTINUING A SLOW PREDNISONE TAPER FOR SIX WEEKS
  3. FOLIC ACID [Concomitant]
     Active Substance: FOLIC ACID
     Dosage: DAILY
  4. PREDNISONE [Concomitant]
     Active Substance: PREDNISONE
     Indication: Pemphigoid

REACTIONS (2)
  - Hypersensitivity pneumonitis [Recovered/Resolved]
  - Off label use [Unknown]
